FAERS Safety Report 4937404-4 (Version None)
Quarter: 2006Q1

REPORT INFORMATION
  Report Type: 
  Country: None (occurrence: None)
  Receive Date: 20060302
  Receipt Date: 20060214
  Transmission Date: 20060701
  Serious: Yes (Life-Threatening, Hospitalization, Other)
  Sender: FDA-Public Use
  Company Number: DE200511001134

PATIENT
  Age: 69 Year
  Sex: Male
  Weight: 80 kg

DRUGS (1)
  1. GEMZAR [Suspect]
     Indication: BILE DUCT CANCER
     Dosage: INTRAVENOUS
     Route: 042
     Dates: start: 20050301, end: 20050901

REACTIONS (5)
  - DRUG INTOLERANCE [None]
  - MALIGNANT NEOPLASM PROGRESSION [None]
  - PYREXIA [None]
  - THROMBOPHLEBITIS [None]
  - WHITE BLOOD CELL COUNT DECREASED [None]
